FAERS Safety Report 25941464 (Version 2)
Quarter: 2025Q4

REPORT INFORMATION
  Report Type: Spontaneous
  Country: US (occurrence: US)
  Receive Date: 20251020
  Receipt Date: 20251022
  Transmission Date: 20260118
  Serious: No
  Sender: BOEHRINGER INGELHEIM
  Company Number: US-Komodo Health-a23aa00000AnWnNAAV

PATIENT
  Age: 70 Year
  Sex: Female

DRUGS (2)
  1. SPIRIVA RESPIMAT [Suspect]
     Active Substance: TIOTROPIUM BROMIDE
     Indication: Chronic obstructive pulmonary disease
     Dosage: 2 PUFFS DAILY
  2. NADOLOL [Concomitant]
     Active Substance: NADOLOL
     Indication: Product used for unknown indication

REACTIONS (12)
  - Vomiting [Recovered/Resolved]
  - Diarrhoea [Recovered/Resolved]
  - Palpitations [Not Recovered/Not Resolved]
  - General physical condition abnormal [Not Recovered/Not Resolved]
  - Diverticulitis [Unknown]
  - Chalazion [Not Recovered/Not Resolved]
  - Thyroid mass [Unknown]
  - Dysphagia [Unknown]
  - Feeling guilty [Unknown]
  - Depression [Unknown]
  - Nervousness [Unknown]
  - Norovirus infection [Unknown]

NARRATIVE: CASE EVENT DATE: 20241230
